FAERS Safety Report 22192272 (Version 1)
Quarter: 2023Q2

REPORT INFORMATION
  Report Type: Spontaneous
  Country: US (occurrence: None)
  Receive Date: 20230408
  Receipt Date: 20230408
  Transmission Date: 20230722
  Serious: Yes (Other)
  Sender: FDA-Public Use
  Company Number: None

PATIENT
  Age: 45 Year
  Sex: Male
  Weight: 105 kg

DRUGS (3)
  1. AMOXICILLIN [Suspect]
     Active Substance: AMOXICILLIN
     Indication: Soft tissue infection
     Dosage: 1 TABLET TWICE A DAY ORAL?
     Route: 048
     Dates: start: 20230119, end: 20230128
  2. DEVICE [Concomitant]
     Active Substance: DEVICE
  3. AMOXICILLIN [Suspect]
     Active Substance: AMOXICILLIN
     Indication: Staphylococcal infection

REACTIONS (3)
  - Dysgeusia [None]
  - Dysgeusia [None]
  - Impaired quality of life [None]

NARRATIVE: CASE EVENT DATE: 20230207
